FAERS Safety Report 8574120 (Version 10)
Quarter: 2013Q1

REPORT INFORMATION
  Report Type: Spontaneous
  Country: US (occurrence: US)
  Receive Date: 20120522
  Receipt Date: 20130228
  Transmission Date: 20140127
  Serious: Yes (Hospitalization, Disabling, Other)
  Sender: FDA-Public Use
  Company Number: US-009507513-1205USA02851

PATIENT
  Sex: Female

DRUGS (3)
  1. FOSAMAX [Suspect]
     Indication: OSTEOPOROSIS
     Dosage: 70 MG, UNK
     Route: 048
     Dates: start: 2003, end: 2008
  2. FOSAMAX PLUS D [Suspect]
     Indication: OSTEOPOROSIS
     Dosage: 70-2800MG
     Route: 048
     Dates: start: 20060528, end: 2008
  3. BONIVA [Suspect]
     Indication: OSTEOPOROSIS
     Dosage: 35 MG, UNK
     Route: 048
     Dates: start: 2008, end: 2010

REACTIONS (31)
  - Lower limb fracture [Not Recovered/Not Resolved]
  - Intramedullary rod insertion [Not Recovered/Not Resolved]
  - Fracture nonunion [Unknown]
  - Bone graft [Unknown]
  - Medical device removal [Unknown]
  - Low turnover osteopathy [Not Recovered/Not Resolved]
  - Oophorectomy [Unknown]
  - Osteoporosis [Not Recovered/Not Resolved]
  - Femur fracture [Not Recovered/Not Resolved]
  - Gastritis [Unknown]
  - Nerve compression [Unknown]
  - Dental care [Unknown]
  - Carpal tunnel decompression [Unknown]
  - Thyroid neoplasm [Unknown]
  - Depression [Unknown]
  - Neuropathy peripheral [Unknown]
  - Goitre [Not Recovered/Not Resolved]
  - Intervertebral disc degeneration [Unknown]
  - Weight increased [Unknown]
  - Anxiety [Unknown]
  - Lacrimation decreased [Unknown]
  - Motion sickness [Unknown]
  - Carpal tunnel decompression [Unknown]
  - Deformity [Unknown]
  - Cervical spinal stenosis [Unknown]
  - Intervertebral disc protrusion [Unknown]
  - Arthritis [Unknown]
  - Fall [Unknown]
  - Gastrooesophageal reflux disease [Unknown]
  - Meniscus removal [Unknown]
  - Meniscus injury [Unknown]
